FAERS Safety Report 9522278 (Version 1)
Quarter: 2013Q3

REPORT INFORMATION
  Report Type: Spontaneous
  Country: FR (occurrence: FR)
  Receive Date: 20130913
  Receipt Date: 20130913
  Transmission Date: 20140515
  Serious: Yes (Other)
  Sender: FDA-Public Use
  Company Number: PHHY2013FR101001

PATIENT
  Age: 79 Year
  Sex: Female

DRUGS (7)
  1. ACLASTA [Suspect]
     Indication: OSTEOPOROSIS
     Dosage: 5 MG
     Route: 042
     Dates: start: 20090907
  2. ACLASTA [Suspect]
     Indication: INTERVERTEBRAL DISC COMPRESSION
  3. PARACETAMOL [Concomitant]
     Dosage: 3 G DAILY
     Dates: start: 20090907
  4. LEVOTHYROX [Concomitant]
     Dosage: 50 UG, QD
  5. EBIXA [Concomitant]
     Dosage: 20 MG, QD
  6. KARDEGIC [Concomitant]
     Dosage: 75 MG, QD
  7. CALCIDOSE VITAMINE D [Concomitant]
     Dosage: 2 DF DAILY

REACTIONS (6)
  - Decreased activity [Recovered/Resolved]
  - Pyrexia [Recovered/Resolved]
  - Influenza like illness [Recovered/Resolved]
  - Arthralgia [Recovered/Resolved]
  - Asthenia [Recovered/Resolved]
  - C-reactive protein increased [Recovered/Resolved]
